FAERS Safety Report 5632808-9 (Version None)
Quarter: 2008Q1

REPORT INFORMATION
  Report Type: 
  Country: None (occurrence: None)
  Receive Date: 20080221
  Receipt Date: 20080218
  Transmission Date: 20080703
  Serious: Yes (Death)
  Sender: FDA-Public Use
  Company Number: CA-WYE-G01085708

PATIENT
  Age: 63 Year
  Sex: Female

DRUGS (2)
  1. TEMSIROLIMUS [Suspect]
     Indication: MANTLE CELL LYMPHOMA REFRACTORY
     Route: 042
     Dates: start: 20070901, end: 20070101
  2. TEMSIROLIMUS [Suspect]
     Indication: BLAST CELL CRISIS
     Dates: start: 20070101, end: 20070101

REACTIONS (1)
  - CEREBRAL HAEMORRHAGE [None]
